FAERS Safety Report 5245649-1 (Version None)
Quarter: 2007Q1

REPORT INFORMATION
  Report Type: 
  Country: None (occurrence: None)
  Receive Date: 20070216
  Receipt Date: 20070205
  Transmission Date: 20070707
  Serious: Yes (Disabling)
  Sender: FDA-Public Use
  Company Number: 002#2#2007-00032

PATIENT
  Sex: Female

DRUGS (4)
  1. REGLAN [Suspect]
     Dosage: SEE IMAGE
     Route: 048
     Dates: start: 20030101, end: 20030201
  2. REGLAN [Suspect]
     Dosage: SEE IMAGE
     Route: 048
     Dates: start: 20030301, end: 20040601
  3. REGLAN [Suspect]
     Dosage: SEE IMAGE
     Route: 048
     Dates: start: 20040701, end: 20050930
  4. REGLAN [Suspect]
     Dosage: SEE IMAGE
     Route: 048
     Dates: start: 20051201, end: 20060301

REACTIONS (6)
  - DYSARTHRIA [None]
  - DYSPHAGIA [None]
  - GAIT DISTURBANCE [None]
  - HYDROCEPHALUS [None]
  - TARDIVE DYSKINESIA [None]
  - TREMOR [None]
